FAERS Safety Report 13410824 (Version 3)
Quarter: 2017Q2

REPORT INFORMATION
  Report Type: Spontaneous
  Country: US (occurrence: US)
  Receive Date: 20170406
  Receipt Date: 20170530
  Transmission Date: 20170830
  Serious: Yes (Other)
  Sender: FDA-Public Use
  Company Number: US-JNJFOC-20170301952

PATIENT
  Age: 11 Year
  Sex: Male

DRUGS (3)
  1. RISPERDAL [Suspect]
     Active Substance: RISPERIDONE
     Indication: DEPRESSION
     Dosage: VARYING DOSES OF 5 ML; 10 ML [CIS]
     Route: 048
     Dates: start: 2003, end: 2010
  2. RISPERDAL [Suspect]
     Active Substance: RISPERIDONE
     Indication: ATTENTION DEFICIT/HYPERACTIVITY DISORDER
     Dosage: VARYING DOSES OF 5 ML; 10 ML [CIS]
     Route: 048
     Dates: start: 2003, end: 2010
  3. RISPERIDONE. [Suspect]
     Active Substance: RISPERIDONE
     Indication: PRODUCT USED FOR UNKNOWN INDICATION
     Route: 048
     Dates: start: 2006, end: 2010

REACTIONS (8)
  - Obesity [Unknown]
  - Epistaxis [Unknown]
  - Emotional disorder [Unknown]
  - Product use in unapproved indication [Unknown]
  - Migraine [Unknown]
  - Off label use [Unknown]
  - Gynaecomastia [Unknown]
  - Weight decreased [Unknown]

NARRATIVE: CASE EVENT DATE: 2003
